FAERS Safety Report 6194219-X (Version None)
Quarter: 2009Q2

REPORT INFORMATION
  Report Type: 
  Country: None (occurrence: None)
  Receive Date: 20090515
  Receipt Date: 20090515
  Transmission Date: 20091009
  Serious: Yes (Life-Threatening, Hospitalization)
  Sender: FDA-Public Use
  Company Number: None

PATIENT
  Sex: Female
  Weight: 58.9676 kg

DRUGS (4)
  1. SERTRALINE [Suspect]
     Indication: MYALGIA
     Dosage: 200MG QD PO
     Route: 048
     Dates: start: 20050101, end: 20090420
  2. SERTRALINE [Suspect]
     Indication: OBSESSIVE-COMPULSIVE DISORDER
     Dosage: 200MG QD PO
     Route: 048
     Dates: start: 20050101, end: 20090420
  3. DIMETAPP [Concomitant]
  4. VALTREX [Concomitant]

REACTIONS (2)
  - RESPIRATORY FAILURE [None]
  - STEVENS-JOHNSON SYNDROME [None]
